FAERS Safety Report 9669775 (Version 1)
Quarter: 2013Q4

REPORT INFORMATION
  Report Type: Spontaneous
  Country: US (occurrence: US)
  Receive Date: 20131105
  Receipt Date: 20131105
  Transmission Date: 20140711
  Serious: Yes (Other)
  Sender: FDA-Public Use
  Company Number: US-BAXTER-2013BAX043086

PATIENT
  Age: 24 Week
  Sex: Male

DRUGS (1)
  1. GLUCOSE, MONOHYDRATE [Suspect]
     Indication: PRODUCT USED FOR UNKNOWN INDICATION
     Route: 042
     Dates: start: 20131022, end: 20131022

REACTIONS (2)
  - Blood glucose decreased [Unknown]
  - Device malfunction [Unknown]
